FAERS Safety Report 7199170-4 (Version None)
Quarter: 2010Q4

REPORT INFORMATION
  Report Type: 
  Country: None (occurrence: None)
  Receive Date: 20101223
  Receipt Date: 20101223
  Transmission Date: 20110411
  Serious: Yes (Hospitalization)
  Sender: FDA-Public Use
  Company Number: None

PATIENT
  Sex: Male
  Weight: 138 kg

DRUGS (6)
  1. CYCLOPHOSPHAMIDE [Suspect]
     Dosage: 5040 MG
  2. CYTARABINE [Suspect]
     Dosage: 3040 MG
  3. MERCAPTOPURINE [Suspect]
     Dosage: 3000 MG
  4. METHOTREXATE [Suspect]
     Dosage: 60 MG
  5. PEG-L-ASPARAGINASE (K-H) [Suspect]
     Dosage: 13050 UNIT
  6. VINCRISTINE SULFATE [Suspect]
     Dosage: 8 MG

REACTIONS (8)
  - ABDOMINAL PAIN UPPER [None]
  - FATIGUE [None]
  - HEADACHE [None]
  - MEDICAL DEVICE COMPLICATION [None]
  - MENINGITIS STAPHYLOCOCCAL [None]
  - NAUSEA [None]
  - PYREXIA [None]
  - VOMITING [None]
